FAERS Safety Report 9865689 (Version 2)
Quarter: 2014Q1

REPORT INFORMATION
  Report Type: Spontaneous
  Country: US (occurrence: US)
  Receive Date: 20140203
  Receipt Date: 20140203
  Transmission Date: 20141002
  Serious: No
  Sender: FDA-Public Use
  Company Number: US-ALLERGAN-1307217US

PATIENT
  Age: 64 Year
  Sex: Male

DRUGS (6)
  1. RESTASIS [Suspect]
     Indication: DRY EYE
     Dosage: UNK UNK, QAM
     Route: 047
     Dates: start: 2006
  2. RESTASIS [Suspect]
     Dosage: UNK
     Route: 047
     Dates: start: 2006
  3. RESTASIS [Suspect]
     Dosage: UNK, BID
     Route: 047
  4. REFRESH CELLUVISC SOLUTION [Concomitant]
     Indication: DRY EYE
     Dosage: 2 GTT, PRN
     Route: 047
  5. REFRESH OPTIVE SENSITIVE [Concomitant]
     Indication: DRY EYE
     Dosage: 2 GTT, PRN
     Route: 047
  6. MEDICATIONS FOR BACK [Concomitant]
     Indication: BACK DISORDER

REACTIONS (8)
  - Incorrect dose administered [Unknown]
  - Inappropriate schedule of drug administration [Unknown]
  - Dark circles under eyes [Not Recovered/Not Resolved]
  - Skin hyperpigmentation [Not Recovered/Not Resolved]
  - Skin disorder [Not Recovered/Not Resolved]
  - Dermatitis contact [Recovered/Resolved]
  - Hypoaesthesia oral [Recovered/Resolved]
  - Dysgeusia [Recovered/Resolved]
